FAERS Safety Report 15423926 (Version 1)
Quarter: 2018Q3

REPORT INFORMATION
  Report Type: Spontaneous
  Country: US (occurrence: US)
  Receive Date: 20180920
  Receipt Date: 20180920
  Transmission Date: 20181010
  Serious: Yes (Other)
  Sender: FDA-Public Use
  Company Number: None

PATIENT

DRUGS (1)
  1. LIPITOR [Suspect]
     Active Substance: ATORVASTATIN CALCIUM
     Indication: BLOOD CHOLESTEROL INCREASED
     Route: 048
     Dates: start: 2003, end: 2008

REACTIONS (8)
  - Cognitive disorder [None]
  - Loss of personal independence in daily activities [None]
  - Tension [None]
  - Personality change [None]
  - Memory impairment [None]
  - Mood altered [None]
  - Disturbance in attention [None]
  - Feeling abnormal [None]
